FAERS Safety Report 5413809-2 (Version None)
Quarter: 2007Q3

REPORT INFORMATION
  Report Type: 
  Country: None (occurrence: None)
  Receive Date: 20070814
  Receipt Date: 20061002
  Transmission Date: 20080115
  Serious: No
  Sender: FDA-Public Use
  Company Number: US-BRISTOL-MYERS SQUIBB COMPANY-13312673

PATIENT
  Age: 50 Year
  Sex: Male

DRUGS (2)
  1. REYATAZ [Suspect]
     Indication: HIV TEST POSITIVE
     Route: 048
     Dates: start: 20041201
  2. EPZICOM [Concomitant]

REACTIONS (1)
  - NAIL DISCOLOURATION [None]
